FAERS Safety Report 15371936 (Version 1)
Quarter: 2018Q3

REPORT INFORMATION
  Report Type: Spontaneous
  Country: FR (occurrence: FR)
  Receive Date: 20180911
  Receipt Date: 20180911
  Transmission Date: 20181010
  Serious: Yes (Life-Threatening, Hospitalization, Other)
  Sender: FDA-Public Use
  Company Number: FR-TEVA-2018-FR-953520

PATIENT
  Age: 94 Year
  Sex: Female

DRUGS (5)
  1. VICTAN 2 MG, COMPRIM? PELLICUL? S?CABLE [Suspect]
     Active Substance: ETHYL LOFLAZEPATE
     Dosage: 1 MILLIGRAM DAILY;
     Route: 048
     Dates: start: 20180513
  2. LAROXYL 40 MG/ML, SOLUTION BUVABLE [Suspect]
     Active Substance: AMITRIPTYLINE HYDROCHLORIDE
     Dosage: 15 GTT DAILY;
     Route: 048
     Dates: start: 20180523
  3. CHLORHYDRATE DE FLUOXETINE [Suspect]
     Active Substance: FLUOXETINE HYDROCHLORIDE
     Dosage: 20 MILLIGRAM DAILY;
     Route: 048
     Dates: start: 201802
  4. NOCTAMIDE 2 MG, COMPRIM? S?CABLE [Suspect]
     Active Substance: LORMETAZEPAM
     Dosage: 2 MILLIGRAM DAILY;
     Route: 048
     Dates: start: 20180523
  5. HALDOL [Suspect]
     Active Substance: HALOPERIDOL
     Dosage: 10 GTT DAILY;
     Route: 048
     Dates: start: 20180523

REACTIONS (6)
  - Prescribed overdose [Recovered/Resolved]
  - Somnolence [Recovered/Resolved]
  - Miosis [Unknown]
  - Overdose [Recovered/Resolved]
  - Bradypnoea [Unknown]
  - Hypoxia [Recovered/Resolved]

NARRATIVE: CASE EVENT DATE: 20180527
